FAERS Safety Report 16540200 (Version 1)
Quarter: 2019Q3

REPORT INFORMATION
  Report Type: Spontaneous
  Country: US (occurrence: US)
  Receive Date: 20190708
  Receipt Date: 20190708
  Transmission Date: 20191004
  Serious: Yes (Other)
  Sender: FDA-Public Use
  Company Number: US-SUNOVION-2019SUN002733

PATIENT
  Age: 45 Year
  Sex: Male

DRUGS (1)
  1. LATUDA [Suspect]
     Active Substance: LURASIDONE HYDROCHLORIDE
     Dosage: 120 MG, BID
     Route: 048

REACTIONS (4)
  - Mental disorder [Unknown]
  - Overdose [Unknown]
  - Schizoaffective disorder [Unknown]
  - Off label use [Unknown]
